FAERS Safety Report 20937844 (Version 1)
Quarter: 2022Q2

REPORT INFORMATION
  Report Type: Spontaneous
  Country: US (occurrence: US)
  Receive Date: 20220609
  Receipt Date: 20220609
  Transmission Date: 20220721
  Serious: No
  Sender: FDA-Public Use
  Company Number: US-GSKCCFUS-Case-01399511_AE-80636

PATIENT
  Sex: Female

DRUGS (1)
  1. TRELEGY ELLIPTA [Suspect]
     Active Substance: FLUTICASONE FUROATE\UMECLIDINIUM BROMIDE\VILANTEROL TRIFENATATE
     Indication: Product used for unknown indication
     Dosage: 1 NCI, QD, 100/62.5/25 MCG
     Route: 055

REACTIONS (8)
  - Vision blurred [Unknown]
  - Dehydration [Unknown]
  - Peripheral swelling [Unknown]
  - Hypoaesthesia [Unknown]
  - Muscular weakness [Unknown]
  - Lethargy [Unknown]
  - Insomnia [Unknown]
  - Therapeutic product effect decreased [Unknown]
